FAERS Safety Report 14741556 (Version 12)
Quarter: 2019Q4

REPORT INFORMATION
  Report Type: Spontaneous
  Country: US (occurrence: US)
  Receive Date: 20180410
  Receipt Date: 20191224
  Transmission Date: 20200122
  Serious: Yes (Hospitalization, Other)
  Sender: FDA-Public Use
  Company Number: US-MALLINCKRODT-T201801360

PATIENT
  Age: 64 Year
  Sex: Male

DRUGS (12)
  1. H.P. ACTHAR [Suspect]
     Active Substance: CORTICOTROPIN
     Dosage: 40 UNITS/0.5 ML 2 TIMES PER WEEK  SUNDAY AND WEDNESDAY
     Route: 058
  2. PREDNISONE. [Suspect]
     Active Substance: PREDNISONE
     Indication: PRODUCT USED FOR UNKNOWN INDICATION
     Dosage: UNK
     Route: 065
  3. H.P. ACTHAR [Suspect]
     Active Substance: CORTICOTROPIN
     Dosage: 40 UNITS/0.5 ML 2 TIMES PER WEEK  SUNDAY AND WEDNESDAY
     Route: 058
  4. H.P. ACTHAR [Suspect]
     Active Substance: CORTICOTROPIN
     Dosage: 40 UNITS/0.5 ML, 2 TIMES PER WEEK (SUNDAY AND WEDNESDAY)
     Route: 058
     Dates: start: 20160505
  5. PREDNISONE. [Suspect]
     Active Substance: PREDNISONE
     Dosage: 5 MG, BID  (MORNING AND EVENING)
     Route: 065
  6. PREDNISONE. [Suspect]
     Active Substance: PREDNISONE
     Dosage: 15 MG, UNK
     Route: 065
  7. METHOTREXATE. [Suspect]
     Active Substance: METHOTREXATE
     Indication: BLOOD GLUCOSE INCREASED
     Dosage: UNK
     Route: 065
  8. FLU [Suspect]
     Active Substance: INFLUENZA VIRUS VACCINE
     Indication: PRODUCT USED FOR UNKNOWN INDICATION
     Dosage: UNK
     Route: 065
  9. H.P. ACTHAR [Suspect]
     Active Substance: CORTICOTROPIN
     Indication: SARCOIDOSIS
     Dosage: 80 UNITS/1ML, TWICE WEEKLY
     Route: 058
     Dates: start: 20160216, end: 2016
  10. H.P. ACTHAR [Suspect]
     Active Substance: CORTICOTROPIN
     Dosage: 40 UNITS / .5 ML 2 TIMES PER WEEK  SUNDAY AND WEDNESDAY
     Route: 058
  11. PREDNISONE. [Suspect]
     Active Substance: PREDNISONE
     Dosage: 20 MG, UNK
     Route: 065
  12. LASIX [Concomitant]
     Active Substance: FUROSEMIDE
     Indication: FLUID RETENTION
     Dosage: UNK
     Route: 065

REACTIONS (38)
  - Sensitivity to weather change [Not Recovered/Not Resolved]
  - Inflammation [Recovering/Resolving]
  - Gait disturbance [Recovering/Resolving]
  - Memory impairment [Not Recovered/Not Resolved]
  - Herpes zoster [Not Recovered/Not Resolved]
  - Irritability [Not Recovered/Not Resolved]
  - Dyspnoea [Recovering/Resolving]
  - Condition aggravated [Not Recovered/Not Resolved]
  - Blood glucose increased [Not Recovered/Not Resolved]
  - Arthralgia [Not Recovered/Not Resolved]
  - Pulmonary pain [Not Recovered/Not Resolved]
  - Dyspepsia [Not Recovered/Not Resolved]
  - Weight decreased [Not Recovered/Not Resolved]
  - Injection site bruising [Recovering/Resolving]
  - Atrial fibrillation [Not Recovered/Not Resolved]
  - Pleurisy [Not Recovered/Not Resolved]
  - Cardiac failure congestive [Not Recovered/Not Resolved]
  - Weight increased [Not Recovered/Not Resolved]
  - Abdominal pain upper [Not Recovered/Not Resolved]
  - Feeling abnormal [Not Recovered/Not Resolved]
  - Joint swelling [Recovering/Resolving]
  - Thinking abnormal [Recovering/Resolving]
  - Sepsis [Not Recovered/Not Resolved]
  - Incorrect dose administered [Not Recovered/Not Resolved]
  - Sarcoidosis [Not Recovered/Not Resolved]
  - Joint stiffness [Not Recovered/Not Resolved]
  - Visual impairment [Not Recovered/Not Resolved]
  - Feeling cold [Unknown]
  - Malaise [Unknown]
  - Product packaging quantity issue [Not Recovered/Not Resolved]
  - Mood altered [Not Recovered/Not Resolved]
  - Glaucoma [Not Recovered/Not Resolved]
  - Fall [Unknown]
  - Premature ageing [Recovering/Resolving]
  - Sleep disorder [Not Recovered/Not Resolved]
  - Infection [Not Recovered/Not Resolved]
  - Tremor [Unknown]
  - Stress [Recovering/Resolving]

NARRATIVE: CASE EVENT DATE: 2019
